FAERS Safety Report 16950929 (Version 1)
Quarter: 2019Q4

REPORT INFORMATION
  Report Type: Spontaneous
  Country: US (occurrence: US)
  Receive Date: 20191023
  Receipt Date: 20191023
  Transmission Date: 20200122
  Serious: No
  Sender: FDA-Public Use
  Company Number: US-TEVA-2019-US-1124733

PATIENT
  Age: 85 Year
  Sex: Male

DRUGS (1)
  1. AZITHROMYCIN TABLETS [Suspect]
     Active Substance: AZITHROMYCIN ANHYDROUS
     Indication: PNEUMONIA
     Dosage: DOSE STRENGTH:  250
     Route: 065
     Dates: start: 20191014

REACTIONS (8)
  - Tinnitus [Recovering/Resolving]
  - Gait inability [Recovering/Resolving]
  - Pyrexia [Unknown]
  - Abdominal pain upper [Recovering/Resolving]
  - Abdominal pain upper [Unknown]
  - Cough [Unknown]
  - Muscular weakness [Recovering/Resolving]
  - Nasopharyngitis [Unknown]

NARRATIVE: CASE EVENT DATE: 201910
